FAERS Safety Report 6983995-1 (Version None)
Quarter: 2010Q3

REPORT INFORMATION
  Report Type: 
  Country: None (occurrence: None)
  Receive Date: 20100915
  Receipt Date: 20090506
  Transmission Date: 20110219
  Serious: No
  Sender: FDA-Public Use
  Company Number: US-WYE-H09248909

PATIENT
  Age: 50 Year
  Sex: Female
  Weight: 65.83 kg

DRUGS (2)
  1. ADVIL MIGRAINE LIQUI-GELS [Suspect]
     Indication: MIGRAINE
     Dosage: 2 CAPSULES X 1
     Route: 048
     Dates: start: 20090504, end: 20090504
  2. ZYRTEC [Concomitant]

REACTIONS (3)
  - BLISTER [None]
  - RASH ERYTHEMATOUS [None]
  - RASH PRURITIC [None]
